FAERS Safety Report 14837605 (Version 1)
Quarter: 2018Q2

REPORT INFORMATION
  Report Type: Spontaneous
  Country: US (occurrence: US)
  Receive Date: 20180502
  Receipt Date: 20180502
  Transmission Date: 20180711
  Serious: Yes (Death, Other)
  Sender: FDA-Public Use
  Company Number: US-BIOGEN-2014BI117214

PATIENT
  Sex: Female
  Weight: 92.16 kg

DRUGS (1)
  1. TYSABRI [Suspect]
     Active Substance: NATALIZUMAB
     Indication: MULTIPLE SCLEROSIS
     Route: 042
     Dates: start: 20110926, end: 20140930

REACTIONS (5)
  - Progressive multifocal leukoencephalopathy [Fatal]
  - Immune reconstitution inflammatory syndrome [Unknown]
  - Mental status changes [Not Recovered/Not Resolved]
  - Aphasia [Not Recovered/Not Resolved]
  - Anxiety [Unknown]

NARRATIVE: CASE EVENT DATE: 2014
